FAERS Safety Report 9174655 (Version 1)
Quarter: 2013Q1

REPORT INFORMATION
  Report Type: Spontaneous
  Country: IE (occurrence: IE)
  Receive Date: 20130320
  Receipt Date: 20130320
  Transmission Date: 20140127
  Serious: Yes (Other)
  Sender: FDA-Public Use
  Company Number: IE-009507513-1303IRL007763

PATIENT
  Age: 78 Year
  Sex: Male

DRUGS (6)
  1. SINEMET PLUS 25MG/100MG TABLETS [Suspect]
     Indication: PARKINSON^S DISEASE
     Dosage: DAILY DOSE 300 MG
     Route: 048
     Dates: start: 20130112
  2. ALLOPURINOL [Concomitant]
     Dosage: 300 MG, UNK
  3. DIAMICRON MR [Concomitant]
     Dosage: DAILY DOSE 30MG
     Route: 048
  4. GLUCOPHAGE [Concomitant]
     Dosage: DAILY DOSE 1000MG
     Route: 048
  5. HUMALOG MIX 25 [Concomitant]
  6. DIOVAN [Concomitant]
     Dosage: DAILY DOSE 160MG
     Route: 048

REACTIONS (2)
  - Hypoglycaemia [Recovered/Resolved]
  - Blood glucose decreased [Recovered/Resolved]
